FAERS Safety Report 6237985-7 (Version None)
Quarter: 2009Q2

REPORT INFORMATION
  Report Type: 
  Country: None (occurrence: None)
  Receive Date: 20090622
  Receipt Date: 20090618
  Transmission Date: 20091009
  Serious: Yes (Other)
  Sender: FDA-Public Use
  Company Number: GB-ASTRAZENECA-2009GB01279

PATIENT
  Age: 6428 Day
  Sex: Female
  Weight: 40 kg

DRUGS (13)
  1. MEROPENEM [Suspect]
     Indication: ENTEROBACTER INFECTION
     Route: 042
     Dates: start: 20090306, end: 20090415
  2. VANCOMYCIN [Suspect]
     Indication: ENTEROCOCCAL INFECTION
     Route: 042
     Dates: start: 20090331
  3. VANCOMYCIN [Suspect]
     Route: 042
     Dates: end: 20090415
  4. ENOXAPARIN SODIUM [Concomitant]
     Indication: THROMBOSIS PROPHYLAXIS
     Route: 058
     Dates: start: 20090318
  5. PARACETAMOL [Concomitant]
     Indication: PAIN
     Route: 048
     Dates: start: 20090306
  6. PARACETAMOL [Concomitant]
     Route: 050
     Dates: start: 20090306
  7. FOLIC ACID [Concomitant]
     Indication: ANAEMIA PROPHYLAXIS
     Route: 048
     Dates: start: 20090306
  8. FOLIC ACID [Concomitant]
     Route: 050
     Dates: start: 20090306
  9. SANDOCAL 1000 [Concomitant]
     Indication: MINERAL SUPPLEMENTATION
     Route: 048
     Dates: start: 20090306
  10. OXYCODONE MR [Concomitant]
     Indication: PAIN
     Route: 048
     Dates: start: 20090330
  11. LACTULOSE [Concomitant]
  12. SENNA [Concomitant]
  13. AMITRIPTYLINE HCL [Concomitant]

REACTIONS (1)
  - PANCYTOPENIA [None]
